FAERS Safety Report 14687819 (Version 2)
Quarter: 2018Q4

REPORT INFORMATION
  Report Type: Spontaneous
  Country: US (occurrence: US)
  Receive Date: 20180328
  Receipt Date: 20181003
  Transmission Date: 20190204
  Serious: Yes (Death, Other)
  Sender: FDA-Public Use
  Company Number: US-ASTRAZENECA-2018SE36826

PATIENT
  Sex: Male

DRUGS (14)
  1. CIPROFLOXACIN. [Concomitant]
     Active Substance: CIPROFLOXACIN
     Dosage: TAKE ONE TAB BY MOUTH TWICE DAILY
     Route: 048
     Dates: start: 20160813
  2. PRILOSEC OTC [Suspect]
     Active Substance: OMEPRAZOLE MAGNESIUM
     Indication: PEPTIC ULCER
     Route: 048
     Dates: start: 2006, end: 2016
  3. METOPROLOL TARTRATE. [Concomitant]
     Active Substance: METOPROLOL TARTRATE
     Dosage: TAKE HALF TAB BY MOUTH TWICE A DAY
     Route: 048
     Dates: start: 20160528
  4. AMLODIPINE BESYLATE. [Concomitant]
     Active Substance: AMLODIPINE BESYLATE
     Dosage: TAKE 1 BY MOUTH EVERY DAY
     Route: 048
     Dates: start: 20160112
  5. PRILOSEC [Suspect]
     Active Substance: OMEPRAZOLE MAGNESIUM
     Indication: PEPTIC ULCER
     Dosage: ONE CAP BY MOUTH EVERY MORNING
     Route: 048
     Dates: start: 20120726
  6. TACROLIMUS. [Concomitant]
     Active Substance: TACROLIMUS
     Dosage: TAKE 2 CAPSULES BY MOUTH EVERY MORNING AND ONE CAPSULE BY MOUTH EVERY NIGHT AT BEDTIME
     Route: 048
     Dates: start: 20150327
  7. NEXIUM 24HR [Suspect]
     Active Substance: ESOMEPRAZOLE MAGNESIUM
     Route: 048
     Dates: start: 2006, end: 2016
  8. HYDROXYZINE PAMOATE. [Concomitant]
     Active Substance: HYDROXYZINE PAMOATE
     Dosage: TAKE ONE CAPSULE BY MOUTH EVERY 6 HOURS AS NEEDED FOR ITCH
     Route: 048
     Dates: start: 20160205
  9. NEXIUM [Suspect]
     Active Substance: ESOMEPRAZOLE MAGNESIUM
     Route: 048
     Dates: start: 2006, end: 2016
  10. PRILOSEC [Suspect]
     Active Substance: OMEPRAZOLE MAGNESIUM
     Indication: PEPTIC ULCER
     Dosage: GENERIC
     Route: 048
     Dates: start: 2006, end: 2016
  11. FOLIC ACID. [Concomitant]
     Active Substance: FOLIC ACID
     Dosage: TAKE BY MOUTH EVERY DAY
     Route: 048
     Dates: start: 20160324
  12. FUROSEMIDE. [Concomitant]
     Active Substance: FUROSEMIDE
     Dosage: TAKE 1 BY MOUTH EVERY DAY
     Route: 048
     Dates: start: 20160112
  13. SPIRONOLACTON [Concomitant]
     Active Substance: SPIRONOLACTONE
     Dosage: TAKE 1 BY MOUTH EVERY DAY
     Route: 048
     Dates: start: 20160112
  14. RANITIDINE. [Concomitant]
     Active Substance: RANITIDINE
     Dosage: TAKE ONE TAB BY MOUTH NIGHTLY
     Route: 048
     Dates: start: 20160630

REACTIONS (3)
  - End stage renal disease [Fatal]
  - Renal failure [Unknown]
  - Chronic kidney disease [Unknown]
